FAERS Safety Report 15675445 (Version 5)
Quarter: 2019Q2

REPORT INFORMATION
  Report Type: Spontaneous
  Country: JP (occurrence: JP)
  Receive Date: 20181130
  Receipt Date: 20190513
  Transmission Date: 20190711
  Serious: Yes (Life-Threatening, Other)
  Sender: FDA-Public Use
  Company Number: JP-GLAXOSMITHKLINE-JP2018JPN213914

PATIENT
  Age: 74 Year
  Sex: Male
  Weight: 68 kg

DRUGS (8)
  1. TANATRIL [Concomitant]
     Active Substance: IMIDAPRIL
     Dosage: 5 MG, 1D
     Route: 048
  2. AVOLVE [Suspect]
     Active Substance: DUTASTERIDE
     Indication: BENIGN PROSTATIC HYPERPLASIA
     Dosage: 0.5 MG, 1D
     Route: 048
     Dates: start: 20141111, end: 20180312
  3. AVOLVE [Suspect]
     Active Substance: DUTASTERIDE
     Indication: LOWER URINARY TRACT SYMPTOMS
     Dosage: 0.5 MG, 1D
     Route: 048
     Dates: start: 20130109, end: 20130625
  4. FLIVAS OD [Concomitant]
     Active Substance: NAFTOPIDIL
     Indication: LOWER URINARY TRACT SYMPTOMS
     Dosage: 75 MG, 1D
     Route: 048
     Dates: start: 20130625
  5. AMLODIN [Concomitant]
     Active Substance: AMLODIPINE BESYLATE
     Dosage: 5 MG, 1D
     Route: 048
  6. ZYLORIC [Concomitant]
     Active Substance: ALLOPURINOL
     Dosage: 100 MG, 1D
     Route: 048
  7. BICALUTAMIDE. [Suspect]
     Active Substance: BICALUTAMIDE
     Indication: HORMONE THERAPY
     Dosage: UNK
     Route: 048
     Dates: start: 20180423
  8. LIPITOR TABLETS [Concomitant]
     Dosage: 5 MG, 1D
     Route: 048

REACTIONS (4)
  - Liver disorder [Recovered/Resolved]
  - Metastases to bone [Recovering/Resolving]
  - Prostate cancer metastatic [Recovering/Resolving]
  - Arthralgia [Recovering/Resolving]

NARRATIVE: CASE EVENT DATE: 20180312
